FAERS Safety Report 18610616 (Version 1)
Quarter: 2020Q4

REPORT INFORMATION
  Report Type: Spontaneous
  Country: US (occurrence: US)
  Receive Date: 20201211
  Receipt Date: 20201211
  Transmission Date: 20210114
  Serious: Yes (Disabling, Other)
  Sender: FDA-Public Use
  Company Number: None

PATIENT
  Age: 52 Year
  Sex: Female
  Weight: 68.4 kg

DRUGS (21)
  1. PROLIA [Suspect]
     Active Substance: DENOSUMAB
     Indication: OSTEOPOROSIS
     Dosage: ?          OTHER FREQUENCY:2X A YEAR;?
     Route: 042
     Dates: start: 20160404, end: 20170907
  2. FLEXERIL [Concomitant]
     Active Substance: CYCLOBENZAPRINE HYDROCHLORIDE
  3. ALBUTEROL RESCUE INHAALER [Concomitant]
  4. TURMERIC CURCUMIN [Concomitant]
     Active Substance: HERBALS\TURMERIC
  5. LISINOPRIL. [Concomitant]
     Active Substance: LISINOPRIL
  6. OMEPRAZOLE. [Concomitant]
     Active Substance: OMEPRAZOLE
  7. EUCRISA [Concomitant]
     Active Substance: CRISABOROLE
  8. BIOTIN [Concomitant]
     Active Substance: BIOTIN
  9. VITAMIN B12 [Concomitant]
     Active Substance: CYANOCOBALAMIN
  10. MELATONIN [Concomitant]
     Active Substance: MELATONIN
  11. MAGNESIUM [Concomitant]
     Active Substance: MAGNESIUM
  12. NEBULIZIER [Concomitant]
  13. CANE [Concomitant]
  14. ALBUTEROL SULFATE SOLUTION [Concomitant]
  15. VITAFUSION WOMEN^S COMPLETE MULTIVITAMINS [Concomitant]
  16. VITAMIN D3 [Concomitant]
     Active Substance: CHOLECALCIFEROL
  17. PLAQUENIL [Concomitant]
     Active Substance: HYDROXYCHLOROQUINE SULFATE
  18. MODAFINIL. [Concomitant]
     Active Substance: MODAFINIL
  19. K2 [Concomitant]
     Active Substance: JWH-018
  20. CALCIUM [Concomitant]
     Active Substance: CALCIUM
  21. NORCO [Concomitant]
     Active Substance: ACETAMINOPHEN\HYDROCODONE BITARTRATE

REACTIONS (7)
  - Urinary tract infection [None]
  - Bronchitis [None]
  - Cystitis [None]
  - Asthma [None]
  - Chronic obstructive pulmonary disease [None]
  - Sinusitis [None]
  - Eczema [None]

NARRATIVE: CASE EVENT DATE: 20160422
